FAERS Safety Report 8757756 (Version 3)
Quarter: 2014Q1

REPORT INFORMATION
  Report Type: Report from Study
  Country: US (occurrence: US)
  Receive Date: 20120828
  Receipt Date: 20140217
  Transmission Date: 20141002
  Serious: Yes (Other)
  Sender: FDA-Public Use
  Company Number: US-ALEXION-A201201543

PATIENT
  Age: 62 Year
  Sex: Female

DRUGS (5)
  1. SOLIRIS [Suspect]
     Indication: THROMBOTIC THROMBOCYTOPENIC PURPURA
     Dosage: 900 MG, QW
     Route: 042
     Dates: start: 20120801
  2. VITAMIN B [Concomitant]
     Dosage: UNK
  3. SYNTHROID [Concomitant]
     Dosage: UNK
  4. PHENERGAN [Concomitant]
     Dosage: UNK
  5. TYLENOL [Concomitant]
     Dosage: UNK, PRN

REACTIONS (7)
  - Cerebrovascular accident [Not Recovered/Not Resolved]
  - Ejection fraction decreased [Unknown]
  - Diastolic dysfunction [Unknown]
  - Atrioventricular block [Not Recovered/Not Resolved]
  - Cardiac tamponade [Unknown]
  - Plasmapheresis [Recovering/Resolving]
  - Periorbital haematoma [Unknown]
